FAERS Safety Report 14919089 (Version 2)
Quarter: 2018Q2

REPORT INFORMATION
  Report Type: Report from Study
  Country: None (occurrence: US)
  Receive Date: 20180521
  Receipt Date: 20180608
  Transmission Date: 20180711
  Serious: Yes (Hospitalization, Other)
  Sender: FDA-Public Use
  Company Number: US-ABBVIE-18K-163-2360743-00

PATIENT
  Age: 47 Year
  Sex: Male
  Weight: 76.27 kg

DRUGS (3)
  1. HUMIRA [Suspect]
     Active Substance: ADALIMUMAB
     Route: 058
     Dates: start: 2018, end: 2018
  2. HUMIRA [Suspect]
     Active Substance: ADALIMUMAB
     Indication: CROHN^S DISEASE
     Dosage: LOADING DOSE
     Route: 058
     Dates: start: 201802, end: 201802
  3. HUMIRA [Suspect]
     Active Substance: ADALIMUMAB
     Route: 058
     Dates: start: 2018, end: 201804

REACTIONS (3)
  - Abdominal abscess [Recovered/Resolved]
  - Ileostomy [Unknown]
  - Gastrointestinal fistula [Recovered/Resolved]

NARRATIVE: CASE EVENT DATE: 201802
